FAERS Safety Report 9368975 (Version 1)
Quarter: 2013Q2

REPORT INFORMATION
  Report Type: Spontaneous
  Country: JP (occurrence: None)
  Receive Date: 20130621
  Receipt Date: 20130621
  Transmission Date: 20140414
  Serious: Yes (Death, Hospitalization, Other)
  Sender: FDA-Public Use
  Company Number: 148714

PATIENT
  Age: 41 Year
  Sex: Male

DRUGS (1)
  1. CISPLATIN [Suspect]
     Indication: NON-SMALL CELL LUNG CANCER METASTATIC

REACTIONS (8)
  - Coronary artery thrombosis [None]
  - Leukocytosis [None]
  - Anaemia [None]
  - Renal impairment [None]
  - Necrosis [None]
  - Arterial thrombosis [None]
  - Embolism [None]
  - General physical health deterioration [None]
